FAERS Safety Report 5151579-6 (Version None)
Quarter: 2006Q4

REPORT INFORMATION
  Report Type: 
  Country: None (occurrence: None)
  Receive Date: 20061109
  Receipt Date: 20061028
  Transmission Date: 20070319
  Serious: Yes (Other)
  Sender: FDA-Public Use
  Company Number: 2006SP005349

PATIENT
  Age: 48 Year
  Sex: Female

DRUGS (6)
  1. PEG-INTRON [Suspect]
     Indication: HEPATITIS C
     Dosage: 180 MCG; QW; SC
     Route: 058
     Dates: start: 20061020
  2. REBETOL [Suspect]
     Indication: HEPATITIS C
     Dosage: 600 MG; BID; PO
     Route: 048
     Dates: start: 20061020
  3. LORATADINE [Concomitant]
  4. ATENOLOL [Concomitant]
  5. ZOLOFT [Concomitant]
  6. IBUPROFEN [Concomitant]

REACTIONS (4)
  - ANGER [None]
  - DEHYDRATION [None]
  - DEPRESSION [None]
  - FEELING HOT AND COLD [None]
